FAERS Safety Report 10045939 (Version 2)
Quarter: 2014Q1

REPORT INFORMATION
  Report Type: Spontaneous
  Country: US (occurrence: US)
  Receive Date: 20140330
  Receipt Date: 20140330
  Transmission Date: 20141002
  Serious: Yes (Disabling)
  Sender: FDA-Public Use
  Company Number: US-GE HEALTHCARE MEDICAL DIAGNOSTICS-OSCN-PR-0711S-0478

PATIENT
  Age: 33 Year
  Sex: Male

DRUGS (7)
  1. OMNISCAN [Suspect]
     Indication: INFARCTION
     Route: 042
     Dates: start: 20031210, end: 20031210
  2. OMNISCAN [Suspect]
     Indication: PRODUCT USED FOR UNKNOWN INDICATION
     Route: 042
     Dates: start: 20040110, end: 20040110
  3. OMNISCAN [Suspect]
     Indication: CELLULITIS
     Route: 042
     Dates: start: 20040720, end: 20040720
  4. OMNISCAN [Suspect]
     Indication: ULCER
     Route: 042
     Dates: start: 20040721, end: 20040721
  5. OMNISCAN [Suspect]
     Indication: OSTEOMYELITIS
     Route: 042
     Dates: start: 20050106, end: 20050106
  6. OMNISCAN [Suspect]
     Indication: OSTEOMYELITIS
     Route: 042
     Dates: start: 20050107, end: 20050107
  7. GADOLINIUM (UNSPECIFIED) [Suspect]
     Indication: DEAFNESS
     Route: 042
     Dates: start: 20060804, end: 20060804

REACTIONS (1)
  - Nephrogenic systemic fibrosis [Not Recovered/Not Resolved]
